FAERS Safety Report 18436843 (Version 5)
Quarter: 2021Q1

REPORT INFORMATION
  Report Type: Spontaneous
  Country: US (occurrence: US)
  Receive Date: 20201028
  Receipt Date: 20210128
  Transmission Date: 20210419
  Serious: Yes (Other)
  Sender: FDA-Public Use
  Company Number: US-PFIZER INC-2020417170

PATIENT
  Age: 65 Year
  Sex: Male
  Weight: 101.15 kg

DRUGS (1)
  1. INLYTA [Suspect]
     Active Substance: AXITINIB
     Indication: LUNG CARCINOMA CELL TYPE UNSPECIFIED STAGE IV
     Dosage: 5 MG, 2X/DAY
     Route: 048
     Dates: start: 2020, end: 202012

REACTIONS (8)
  - Off label use [Unknown]
  - Dysphonia [Recovering/Resolving]
  - Balance disorder [Recovering/Resolving]
  - Tonsillar erythema [Recovering/Resolving]
  - Depression [Unknown]
  - Glossitis [Recovering/Resolving]
  - Fatigue [Recovering/Resolving]
  - Hypersomnia [Recovering/Resolving]

NARRATIVE: CASE EVENT DATE: 2020
